FAERS Safety Report 6096332-4 (Version None)
Quarter: 2009Q1

REPORT INFORMATION
  Report Type: 
  Country: None (occurrence: None)
  Receive Date: 20090227
  Receipt Date: 20090126
  Transmission Date: 20090719
  Serious: No
  Sender: FDA-Public Use
  Company Number: A0756467A

PATIENT
  Age: 14 Year
  Sex: Male

DRUGS (6)
  1. LAMICTAL [Suspect]
     Indication: MOOD SWINGS
     Dosage: 25MG PER DAY
     Route: 048
     Dates: start: 20081107, end: 20081112
  2. BENZACLIN [Suspect]
     Indication: DRUG USE FOR UNKNOWN INDICATION
  3. ABILIFY [Concomitant]
  4. LORAZEPAM [Concomitant]
  5. MINOCYCLINE [Concomitant]
  6. TAZORAC [Concomitant]

REACTIONS (3)
  - DERMATITIS CONTACT [None]
  - PRURITUS [None]
  - RASH [None]
